FAERS Safety Report 8010034-6 (Version None)
Quarter: 2011Q4

REPORT INFORMATION
  Report Type: 
  Country: None (occurrence: None)
  Receive Date: 20111221
  Receipt Date: 20111207
  Transmission Date: 20120403
  Serious: Yes (Death)
  Sender: FDA-Public Use
  Company Number: JPI-P-018624

PATIENT
  Age: 67 Year
  Sex: Male

DRUGS (5)
  1. ACE INHIBITOR [Concomitant]
  2. MULTIPLE UNSPECIFIED MEDICATIONS [Concomitant]
  3. DIURETICS [Concomitant]
  4. XYREM [Suspect]
     Indication: TREMOR
     Dosage: (UNKNOWN), ORAL 8 GM (2 GM, 4 IN 1 D), ORAL
     Route: 048
     Dates: start: 20091115
  5. XYREM [Suspect]
     Indication: TREMOR
     Dosage: (UNKNOWN), ORAL 8 GM (2 GM, 4 IN 1 D), ORAL
     Route: 048
     Dates: start: 20111116

REACTIONS (2)
  - CARDIAC FAILURE [None]
  - LOSS OF CONSCIOUSNESS [None]
